FAERS Safety Report 7406561-2 (Version None)
Quarter: 2011Q2

REPORT INFORMATION
  Report Type: 
  Country: None (occurrence: None)
  Receive Date: 20110406
  Receipt Date: 20110406
  Transmission Date: 20111010
  Serious: Yes (Other)
  Sender: FDA-Public Use
  Company Number: None

PATIENT
  Sex: Male
  Weight: 83.9154 kg

DRUGS (2)
  1. ATENOLOL [Suspect]
     Indication: HYPERTENSION
     Dosage: 50 MG 1 DAILY BY MOUTH
     Route: 048
     Dates: start: 20101001, end: 20101101
  2. ATENOLOL [Suspect]
     Indication: HYPERTENSION
     Dosage: 50 MG 1 DAILY BY MOUTH
     Route: 048
     Dates: start: 20101102, end: 20101202

REACTIONS (3)
  - PRODUCT SUBSTITUTION ISSUE [None]
  - PRURITUS [None]
  - SWELLING [None]
